FAERS Safety Report 21901446 (Version 1)
Quarter: 2023Q1

REPORT INFORMATION
  Report Type: Spontaneous
  Country: CA (occurrence: CA)
  Receive Date: 20230123
  Receipt Date: 20230123
  Transmission Date: 20230418
  Serious: Yes (Life-Threatening, Hospitalization)
  Sender: FDA-Public Use
  Company Number: CA-BAYER-2023A008096

PATIENT
  Age: 77 Year
  Sex: Male
  Weight: 135 kg

DRUGS (12)
  1. XARELTO [Suspect]
     Active Substance: RIVAROXABAN
     Indication: Cardiovascular event prophylaxis
     Dosage: 20 MG, QD
     Route: 048
  2. ALBUTEROL [Concomitant]
     Active Substance: ALBUTEROL
  3. FLUTICASONE PROPIONATE [Concomitant]
     Active Substance: FLUTICASONE PROPIONATE
  4. SALMETEROL [Concomitant]
     Active Substance: SALMETEROL
  5. TAMSULOSIN [Concomitant]
     Active Substance: TAMSULOSIN
  6. ALLOPURINOL [Concomitant]
     Active Substance: ALLOPURINOL
  7. METOPROLOL [Concomitant]
     Active Substance: METOPROLOL
  8. PERINDOPRIL ERBUMINE [Concomitant]
     Active Substance: PERINDOPRIL ERBUMINE
  9. INDAPAMIDE [Concomitant]
     Active Substance: INDAPAMIDE
  10. FLUTICASONE FUROATE [Concomitant]
     Active Substance: FLUTICASONE FUROATE
  11. ATORVASTATIN [Concomitant]
     Active Substance: ATORVASTATIN
  12. TIOTROPIUM BROMIDE [Concomitant]
     Active Substance: TIOTROPIUM BROMIDE
     Route: 065

REACTIONS (2)
  - Tumour rupture [Recovered/Resolved]
  - Haemoperitoneum [Recovered/Resolved]
